FAERS Safety Report 5665113-5 (Version None)
Quarter: 2008Q1

REPORT INFORMATION
  Report Type: 
  Country: None (occurrence: None)
  Receive Date: 20080314
  Receipt Date: 20041001
  Transmission Date: 20080703
  Serious: No
  Sender: FDA-Public Use
  Company Number: US-ABBOTT-04P-163-0276161-00

PATIENT
  Sex: Female
  Weight: 64.922 kg

DRUGS (3)
  1. HUMIRA [Suspect]
     Indication: JOINT SWELLING
     Route: 058
     Dates: start: 20040927
  2. HUMIRA [Suspect]
     Indication: DRUG USE FOR UNKNOWN INDICATION
  3. ESOMEPRAZOLE MAGNESIUM [Concomitant]
     Indication: GASTROOESOPHAGEAL REFLUX DISEASE
     Route: 048

REACTIONS (2)
  - DIZZINESS [None]
  - INJECTION SITE IRRITATION [None]
